FAERS Safety Report 12709447 (Version 1)
Quarter: 2016Q3

REPORT INFORMATION
  Report Type: Spontaneous
  Country: US (occurrence: US)
  Receive Date: 20160902
  Receipt Date: 20160902
  Transmission Date: 20161109
  Serious: Yes (Other)
  Sender: FDA-Public Use
  Company Number: US-BTG INTERNATIONAL LTD-BTG00928

PATIENT

DRUGS (2)
  1. CROFAB [Suspect]
     Active Substance: CROTALIDAE POLYVALENT IMMUNE FAB (OVINE)
     Dosage: 6 VIALS, UNK
     Dates: start: 20160803
  2. CROFAB [Suspect]
     Active Substance: CROTALIDAE POLYVALENT IMMUNE FAB (OVINE)
     Indication: SNAKE BITE
     Dosage: 6 VIALS
     Route: 042
     Dates: start: 20160803

REACTIONS (5)
  - Tremor [Recovered/Resolved]
  - Metabolic acidosis [Unknown]
  - Peripheral swelling [Recovered/Resolved]
  - Exposure during pregnancy [None]
  - Labour induction [Unknown]

NARRATIVE: CASE EVENT DATE: 201608
